FAERS Safety Report 6055902-X (Version None)
Quarter: 2009Q1

REPORT INFORMATION
  Report Type: 
  Country: None (occurrence: None)
  Receive Date: 20090128
  Receipt Date: 20090120
  Transmission Date: 20090719
  Serious: Yes (Other)
  Sender: FDA-Public Use
  Company Number: PHBS2008DE05350

PATIENT
  Age: 61 Year

DRUGS (4)
  1. PAMIDRONATE DISODIUM [Suspect]
     Indication: METASTASES TO BONE
  2. ZOLEDRONIC ACID [Suspect]
     Indication: METASTASES TO BONE
     Dosage: 4 MG, QMO
     Route: 042
  3. CORTICOSTEROIDS [Concomitant]
     Indication: PROSTATE CANCER
  4. DOCETAXEL [Concomitant]
     Indication: PROSTATE CANCER

REACTIONS (5)
  - BONE DISORDER [None]
  - JAW OPERATION [None]
  - OSTEONECROSIS [None]
  - PRIMARY SEQUESTRUM [None]
  - TOOTH EXTRACTION [None]
